FAERS Safety Report 5688807-4 (Version None)
Quarter: 2008Q1

REPORT INFORMATION
  Report Type: 
  Country: None (occurrence: None)
  Receive Date: 20080331
  Receipt Date: 20071019
  Transmission Date: 20080703
  Serious: Yes (Death, Hospitalization, Other)
  Sender: FDA-Public Use
  Company Number: TR-AVENTIS-200718442GDDC

PATIENT
  Age: 70 Year
  Sex: Female
  Weight: 77 kg

DRUGS (8)
  1. LANTUS [Suspect]
     Route: 058
     Dates: start: 20000101, end: 20070701
  2. LANTUS [Suspect]
     Route: 058
     Dates: start: 20000101, end: 20070701
  3. OPTIPEN (INSULIN PUMP) [Suspect]
     Route: 058
     Dates: start: 20000101, end: 20070701
  4. CIPRAM [Concomitant]
     Dosage: DOSE QUANTITY: 1
     Route: 048
  5. ZOCOR [Concomitant]
     Dosage: DOSE QUANTITY: 1
     Route: 048
  6. KETOSTERIL                         /00512401/ [Concomitant]
     Indication: RENAL FAILURE
     Dosage: DOSE QUANTITY: 5
     Route: 048
  7. PROTIONAMIDE [Concomitant]
     Dosage: DOSE QUANTITY: 1
     Route: 048
  8. ECOPIRIN [Concomitant]
     Dosage: DOSE QUANTITY: 1
     Route: 048

REACTIONS (8)
  - CARDIAC ARREST [None]
  - CARDIAC FAILURE [None]
  - DYSPNOEA [None]
  - HYPERGLYCAEMIA [None]
  - NAUSEA [None]
  - PHARMACEUTICAL PRODUCT COMPLAINT [None]
  - RENAL FAILURE [None]
  - SENSE OF OPPRESSION [None]
